FAERS Safety Report 8579819-1 (Version None)
Quarter: 2012Q3

REPORT INFORMATION
  Report Type: 
  Country: None (occurrence: None)
  Receive Date: 20120808
  Receipt Date: 20120526
  Transmission Date: 20120928
  Serious: No
  Sender: FDA-Public Use
  Company Number: US-MUTUAL PHARMACEUTICAL COMPANY, INC.-DXCY20120006

PATIENT
  Sex: Female
  Weight: 61.29 kg

DRUGS (1)
  1. DOXYCYCLINE [Suspect]
     Indication: LYME DISEASE
     Route: 048
     Dates: start: 20120524

REACTIONS (4)
  - SINUS HEADACHE [None]
  - NAUSEA [None]
  - TONGUE DISCOLOURATION [None]
  - TONGUE DRY [None]
